FAERS Safety Report 7321515-2 (Version None)
Quarter: 2011Q1

REPORT INFORMATION
  Report Type: 
  Country: None (occurrence: None)
  Receive Date: 20110228
  Receipt Date: 20110219
  Transmission Date: 20110831
  Serious: Yes (Hospitalization)
  Sender: FDA-Public Use
  Company Number: NL-MEDIMMUNE-MEDI-0012721

PATIENT
  Sex: Male
  Weight: 6.06 kg

DRUGS (2)
  1. SYNAGIS [Suspect]
     Route: 030
     Dates: start: 20101105, end: 20110126
  2. SYNAGIS [Suspect]
     Route: 030
     Dates: start: 20110221, end: 20110221

REACTIONS (2)
  - HYPOVENTILATION [None]
  - RESPIRATORY SYNCYTIAL VIRUS TEST POSITIVE [None]
